FAERS Safety Report 5125743-6 (Version None)
Quarter: 2006Q4

REPORT INFORMATION
  Report Type: 
  Country: None (occurrence: None)
  Receive Date: 20061012
  Receipt Date: 20060929
  Transmission Date: 20070319
  Serious: Yes (Other)
  Sender: FDA-Public Use
  Company Number: CA-AMGEN-US195196

PATIENT

DRUGS (1)
  1. KEPIVANCE [Suspect]
     Indication: STOMATITIS
     Route: 065

REACTIONS (2)
  - CLOSTRIDIAL INFECTION [None]
  - GASTROINTESTINAL NECROSIS [None]
